FAERS Safety Report 23493895 (Version 1)
Quarter: 2024Q1

REPORT INFORMATION
  Report Type: Spontaneous
  Country: US (occurrence: US)
  Receive Date: 20240207
  Receipt Date: 20240207
  Transmission Date: 20240410
  Serious: No
  Sender: FDA-Public Use
  Company Number: US-SA-SAC20240131000829

PATIENT
  Age: 28 Year
  Sex: Female

DRUGS (1)
  1. DUPIXENT [Suspect]
     Active Substance: DUPILUMAB
     Dosage: 300 MG, QOW
     Route: 058

REACTIONS (5)
  - Insomnia [Unknown]
  - Eczema [Recovering/Resolving]
  - Pruritus [Recovering/Resolving]
  - Dry skin [Recovering/Resolving]
  - Rash [Recovering/Resolving]
